FAERS Safety Report 9931596 (Version 1)
Quarter: 2014Q1

REPORT INFORMATION
  Report Type: Spontaneous
  Country: FI (occurrence: None)
  Receive Date: 20140224
  Receipt Date: 20140224
  Transmission Date: 20141002
  Serious: Yes (Hospitalization, Other)
  Sender: FDA-Public Use
  Company Number: AUR-APL-2014-01924

PATIENT
  Sex: Male

DRUGS (6)
  1. CARVEDILOL [Suspect]
     Indication: PRODUCT USED FOR UNKNOWN INDICATION
  2. CARDACE (ENALAPRIL MALEATE) [Suspect]
     Indication: PRODUCT USED FOR UNKNOWN INDICATION
  3. FURESIS [Suspect]
     Indication: PRODUCT USED FOR UNKNOWN INDICATION
  4. CHONDROITIN SULFATE SODIUM [Suspect]
     Indication: PRODUCT USED FOR UNKNOWN INDICATION
  5. PREDNISOLONE [Suspect]
     Indication: PRODUCT USED FOR UNKNOWN INDICATION
  6. DIFORMIN RETARD [Suspect]
     Indication: PRODUCT USED FOR UNKNOWN INDICATION

REACTIONS (10)
  - Overdose [None]
  - Pneumonia [None]
  - Diabetes mellitus [None]
  - Chronic obstructive pulmonary disease [None]
  - Drug ineffective [None]
  - Cardiac failure [None]
  - Diarrhoea [None]
  - Abdominal discomfort [None]
  - Cardiac disorder [None]
  - Fluid retention [None]
